FAERS Safety Report 23132416 (Version 1)
Quarter: 2023Q4

REPORT INFORMATION
  Report Type: Report from Study
  Country: NL (occurrence: NL)
  Receive Date: 20231101
  Receipt Date: 20231101
  Transmission Date: 20240109
  Serious: Yes (Hospitalization)
  Sender: FDA-Public Use
  Company Number: NL-AstraZeneca-2023A245634

PATIENT
  Sex: Male
  Weight: 6.7 kg

DRUGS (1)
  1. SYNAGIS [Suspect]
     Active Substance: PALIVIZUMAB
     Indication: Ill-defined disorder
     Dosage: MONTHLY
     Route: 030
     Dates: start: 20230928

REACTIONS (1)
  - Respiratory syncytial virus infection [Not Recovered/Not Resolved]
